FAERS Safety Report 10036124 (Version 3)
Quarter: 2014Q2

REPORT INFORMATION
  Report Type: Spontaneous
  Country: JP (occurrence: JP)
  Receive Date: 20140325
  Receipt Date: 20140630
  Transmission Date: 20141212
  Serious: Yes (Death)
  Sender: FDA-Public Use
  Company Number: JP-009507513-1403JPN009723

PATIENT
  Age: 71 Year
  Sex: Male
  Weight: 45 kg

DRUGS (5)
  1. CANCIDAS FOR INTRAVENOUS DRIP INFUSION 50MG [Suspect]
     Indication: SYSTEMIC CANDIDA
     Dosage: 50 MG, QD
     Route: 041
     Dates: start: 20130827, end: 20130908
  2. CANCIDAS FOR INTRAVENOUS DRIP INFUSION 70MG [Suspect]
     Indication: SYSTEMIC CANDIDA
     Dosage: 70 MG, QD
     Route: 041
     Dates: start: 20130826, end: 20130826
  3. RECOMODULIN [Concomitant]
     Indication: DISSEMINATED INTRAVASCULAR COAGULATION
     Dosage: 19.2 THOUSAND-MILLION UNIT, QD
     Route: 051
     Dates: start: 20130824, end: 20130829
  4. KENKETU NONTHRON [Concomitant]
     Indication: DISSEMINATED INTRAVASCULAR COAGULATION
     Dosage: 1.5 THOUSAND-MILLION UNIT, QD
     Route: 051
     Dates: start: 20130824, end: 20130826
  5. ZOSYN [Concomitant]
     Indication: SEPSIS
     Dosage: 2.2 G, QID
     Route: 051
     Dates: start: 20130824, end: 20130907

REACTIONS (5)
  - Sepsis [Fatal]
  - Pneumonia [Fatal]
  - White blood cell count increased [Fatal]
  - Blood alkaline phosphatase increased [Unknown]
  - Respiratory failure [Fatal]
